FAERS Safety Report 11840963 (Version 1)
Quarter: 2015Q4

REPORT INFORMATION
  Report Type: Spontaneous
  Country: US (occurrence: US)
  Receive Date: 20151216
  Receipt Date: 20151216
  Transmission Date: 20160305
  Serious: No
  Sender: FDA-Public Use
  Company Number: US-BAYER-2015-489777

PATIENT
  Sex: Female

DRUGS (3)
  1. CLARITIN REDITABS [Suspect]
     Active Substance: LORATADINE
     Indication: COUGH
     Dosage: UNK
  2. CLARITIN REDITABS [Suspect]
     Active Substance: LORATADINE
     Indication: RETCHING
  3. CLARITIN REDITABS [Suspect]
     Active Substance: LORATADINE
     Indication: SINUS CONGESTION

REACTIONS (2)
  - Therapeutic response unexpected [None]
  - Product use issue [None]
